FAERS Safety Report 12572743 (Version 1)
Quarter: 2016Q3

REPORT INFORMATION
  Report Type: Spontaneous
  Country: FR (occurrence: FR)
  Receive Date: 20160720
  Receipt Date: 20160720
  Transmission Date: 20161109
  Serious: Yes (Other)
  Sender: FDA-Public Use
  Company Number: FR-ASTRAZENECA-2016SE75903

PATIENT
  Sex: Female

DRUGS (1)
  1. IRESSA [Suspect]
     Active Substance: GEFITINIB
     Indication: SMALL CELL LUNG CANCER
     Route: 048
     Dates: start: 201503

REACTIONS (1)
  - Cataract [Not Recovered/Not Resolved]
